FAERS Safety Report 15846274 (Version 1)
Quarter: 2019Q1

REPORT INFORMATION
  Report Type: Report from Study
  Country: CA (occurrence: CA)
  Receive Date: 20190120
  Receipt Date: 20190120
  Transmission Date: 20190417
  Serious: Yes (Other)
  Sender: FDA-Public Use
  Company Number: PHHY2013CA058670

PATIENT
  Sex: Female

DRUGS (4)
  1. RAMIPRIL. [Suspect]
     Active Substance: RAMIPRIL
     Indication: BLOOD PRESSURE ABNORMAL
     Dosage: 2.5 MG, BID
     Route: 048
     Dates: start: 2009
  2. ESTRADOT [Suspect]
     Active Substance: ESTRADIOL
     Dosage: 25 MG, QD
     Route: 061
     Dates: start: 2003
  3. VENLAFAXINE [Concomitant]
     Active Substance: VENLAFAXINE HYDROCHLORIDE
     Indication: ANXIETY
     Dosage: 75 MG, QD
     Route: 048
     Dates: start: 2004
  4. ESTRADOT [Suspect]
     Active Substance: ESTRADIOL
     Indication: BLOOD OESTROGEN ABNORMAL
     Dosage: 37.5 UG, UNK
     Route: 065

REACTIONS (3)
  - Drug ineffective [Unknown]
  - Hot flush [Unknown]
  - Intentional self-injury [Unknown]
